FAERS Safety Report 7833086-2 (Version None)
Quarter: 2011Q4

REPORT INFORMATION
  Report Type: 
  Country: None (occurrence: None)
  Receive Date: 20111024
  Receipt Date: 20111019
  Transmission Date: 20120403
  Serious: Yes (Death, Hospitalization)
  Sender: FDA-Public Use
  Company Number: US-US-EMD SERONO, INC.-7078913

PATIENT
  Sex: Female
  Weight: 55 kg

DRUGS (9)
  1. GABAPENTIN [Concomitant]
     Route: 048
  2. CLONAZEPAM [Concomitant]
     Route: 048
  3. HYDROCHLOROTHIAZIDE [Concomitant]
  4. CEPHELEXIN [Concomitant]
     Route: 048
  5. TRAMADOL HCL [Concomitant]
     Route: 048
  6. VESICARE [Concomitant]
     Route: 048
  7. AMITRIPTYLINE HCL [Concomitant]
     Route: 048
  8. REBIF [Suspect]
     Indication: MULTIPLE SCLEROSIS
     Route: 058
     Dates: start: 20090925, end: 20110821
  9. ROPINIROLE [Concomitant]
     Indication: RESTLESS LEGS SYNDROME
     Route: 048

REACTIONS (11)
  - HYPERTENSION [None]
  - MACULOPATHY [None]
  - RESPIRATORY FAILURE [None]
  - ELECTROCARDIOGRAM ST SEGMENT ELEVATION [None]
  - CARDIAC FAILURE CONGESTIVE [None]
  - VARICOSE VEIN [None]
  - SEPSIS [None]
  - INTESTINAL INFARCTION [None]
  - ENURESIS [None]
  - PINGUECULA [None]
  - PUNCTATE KERATITIS [None]
